FAERS Safety Report 9242121 (Version 1)
Quarter: 2013Q2

REPORT INFORMATION
  Report Type: Spontaneous
  Country: GB (occurrence: GB)
  Receive Date: 20130419
  Receipt Date: 20130419
  Transmission Date: 20140414
  Serious: Yes (Hospitalization)
  Sender: FDA-Public Use
  Company Number: GB-JNJFOC-20130407777

PATIENT
  Age: 64 Year
  Sex: Male
  Weight: 82.55 kg

DRUGS (6)
  1. IBUPROFEN [Suspect]
     Indication: SCIATICA
     Route: 048
     Dates: end: 20130312
  2. IBUPROFEN [Suspect]
     Indication: SCIATICA
     Route: 048
     Dates: start: 20130308
  3. ASPIRIN [Suspect]
     Indication: CARDIOVASCULAR EVENT PROPHYLAXIS
     Route: 048
     Dates: end: 20130314
  4. CO-DYDRAMOL [Suspect]
     Indication: SCIATICA
     Route: 065
  5. BENDROFLUMETHIAZIDE [Concomitant]
     Route: 065
  6. PERINDOPRIL ERBUMINE [Concomitant]
     Route: 065

REACTIONS (6)
  - Dizziness [Unknown]
  - Lethargy [Unknown]
  - Melaena [Unknown]
  - Nausea [Unknown]
  - Upper gastrointestinal haemorrhage [Recovered/Resolved]
  - Vomiting [Unknown]
